FAERS Safety Report 24702846 (Version 1)
Quarter: 2024Q4

REPORT INFORMATION
  Report Type: Spontaneous
  Country: US (occurrence: US)
  Receive Date: 20241205
  Receipt Date: 20241205
  Transmission Date: 20250115
  Serious: No
  Sender: GE HEALTHCARE
  Company Number: US-GE HEALTHCARE-2024CSU010781

PATIENT
  Age: 70 Year
  Sex: Female

DRUGS (4)
  1. VIZAMYL [Suspect]
     Active Substance: FLUTEMETAMOL F-18
     Indication: Positron emission tomogram
     Dosage: 185 MBQ, TOTAL
     Route: 065
     Dates: start: 20240916, end: 20240916
  2. VALIUM [Concomitant]
     Active Substance: DIAZEPAM
     Indication: Claustrophobia
     Dosage: UNK
     Route: 065
     Dates: start: 20240916, end: 20240916
  3. METOPROLOL SUCCINATE [Concomitant]
     Active Substance: METOPROLOL SUCCINATE
     Dosage: UNK
  4. NICORETTE [Concomitant]
     Active Substance: NICOTINE
     Route: 048

REACTIONS (3)
  - Throat irritation [Recovering/Resolving]
  - Pruritus [Recovering/Resolving]
  - Lip swelling [Recovering/Resolving]

NARRATIVE: CASE EVENT DATE: 20240916
